FAERS Safety Report 8103599 (Version 5)
Quarter: 2012Q4

REPORT INFORMATION
  Report Type: 
  Country: NZ (occurrence: NZ)
  Receive Date: 20110824
  Receipt Date: 20121003
  Transmission Date: 20130627
  Serious: Yes (Death)
  Sender: FDA-Public Use
  Company Number: NZ-PFIZER INC-2011194173

PATIENT
  Age: 18 Year
  Sex: Female

DRUGS (7)
  1. DEPO-PROVERA [Suspect]
     Indication: CONTRACEPTION
     Dosage: 150 mg, every 3 months
     Route: 030
     Dates: start: 20081103, end: 20081103
  2. DEPO-PROVERA [Suspect]
     Dosage: 150 mg, every 3 months
     Route: 030
     Dates: start: 20090126, end: 20090126
  3. DEPO-PROVERA [Suspect]
     Dosage: 150 mg, every 3 months
     Route: 030
     Dates: start: 20090417, end: 20090417
  4. DEPO-PROVERA [Suspect]
     Dosage: 150 mg, every 3 months
     Route: 030
     Dates: start: 20090710, end: 20090710
  5. GARDASIL [Suspect]
     Indication: IMMUNISATION
     Dosage: single dose
     Dates: start: 20080918, end: 20080918
  6. GARDASIL [Suspect]
     Dosage: single dose
     Dates: start: 20081118, end: 20081118
  7. GARDASIL [Suspect]
     Dosage: single dose
     Dates: start: 20090317, end: 20090317

REACTIONS (23)
  - Sudden death [Fatal]
  - Skin papilloma [Unknown]
  - Dry skin [Unknown]
  - Abnormal behaviour [Unknown]
  - Dizziness [Unknown]
  - Paraesthesia [Unknown]
  - Amnesia [Unknown]
  - Abdominal pain [Unknown]
  - Agitation [Unknown]
  - Muscular weakness [Unknown]
  - Fatigue [Unknown]
  - Increased appetite [Unknown]
  - Night sweats [Unknown]
  - Coordination abnormal [Unknown]
  - Thinking abnormal [Unknown]
  - Activities of daily living impaired [Unknown]
  - Chest pain [Unknown]
  - Heart rate increased [Unknown]
  - Upper respiratory tract infection [Not Recovered/Not Resolved]
  - Rhinorrhoea [Not Recovered/Not Resolved]
  - Headache [Unknown]
  - Acne [Unknown]
  - Rash [Unknown]
